FAERS Safety Report 6267601-X (Version None)
Quarter: 2009Q3

REPORT INFORMATION
  Report Type: 
  Country: None (occurrence: None)
  Receive Date: 20090714
  Receipt Date: 20090630
  Transmission Date: 20100115
  Serious: Yes (Hospitalization)
  Sender: FDA-Public Use
  Company Number: FR-ELI_LILLY_AND_COMPANY-FR200906001137

PATIENT
  Age: 60 Year
  Sex: Male
  Weight: 62 kg

DRUGS (11)
  1. FORTEO [Suspect]
     Indication: OSTEOPOROSIS
     Dosage: 20 UG, DAILY (1/D)
     Route: 058
     Dates: start: 20090301, end: 20090401
  2. CACIT D3 [Concomitant]
     Indication: OSTEOPOROSIS
     Dosage: UNK, UNKNOWN
     Route: 065
     Dates: start: 20090101
  3. FUZEON [Concomitant]
     Dosage: 90 MG, 2/D
     Route: 058
  4. DEXAMBUTOL [Concomitant]
     Dosage: 1 G, DAILY (1/D)
     Route: 065
  5. ZECLAR [Concomitant]
     Dosage: 500 MG, 2/D
     Route: 065
  6. IZILOX [Concomitant]
     Dosage: 400 MG, DAILY (1/D)
     Route: 065
  7. MYOLASTAN [Concomitant]
     Dosage: UNK, UNKNOWN
     Route: 065
  8. KALETRA [Concomitant]
     Dosage: UNK, UNKNOWN
     Route: 065
  9. FUNGIZONE [Concomitant]
     Dosage: UNK, UNKNOWN
     Route: 065
  10. CONTRAMAL [Concomitant]
     Dosage: UNK, UNKNOWN
     Route: 065
  11. ROVALCYTE [Concomitant]
     Dosage: 900 MG, DAILY (1/D)
     Route: 065

REACTIONS (1)
  - NEPHROLITHIASIS [None]
